FAERS Safety Report 14801981 (Version 1)
Quarter: 2018Q2

REPORT INFORMATION
  Report Type: Spontaneous
  Country: US (occurrence: US)
  Receive Date: 20180424
  Receipt Date: 20180424
  Transmission Date: 20180711
  Serious: Yes (Other)
  Sender: FDA-Public Use
  Company Number: US-NAPPMUNDI-USA-2017-0141906

PATIENT
  Sex: Male

DRUGS (1)
  1. OXYCONTIN [Suspect]
     Active Substance: OXYCODONE HYDROCHLORIDE
     Indication: LYME DISEASE
     Route: 048

REACTIONS (8)
  - Drug withdrawal syndrome [Unknown]
  - Influenza like illness [Unknown]
  - Restlessness [Unknown]
  - Pain [Recovering/Resolving]
  - Asthenia [Not Recovered/Not Resolved]
  - Drug dependence [Recovering/Resolving]
  - Discomfort [Unknown]
  - Feeling abnormal [Not Recovered/Not Resolved]
